FAERS Safety Report 5431418-6 (Version None)
Quarter: 2007Q3

REPORT INFORMATION
  Report Type: 
  Country: None (occurrence: None)
  Receive Date: 20070830
  Receipt Date: 20070605
  Transmission Date: 20080115
  Serious: No
  Sender: FDA-Public Use
  Company Number: A0654269A

PATIENT
  Age: 27 Year
  Sex: Female

DRUGS (4)
  1. WELLBUTRIN XL [Suspect]
     Indication: DEPRESSION
     Dosage: 300MG PER DAY
     Route: 048
     Dates: start: 20070501
  2. ORTHO CYCLEN-21 [Concomitant]
  3. COZAAR [Concomitant]
  4. EFFEXOR [Concomitant]

REACTIONS (5)
  - DIZZINESS [None]
  - GAIT DISTURBANCE [None]
  - IMPAIRED DRIVING ABILITY [None]
  - NAUSEA [None]
  - VOMITING [None]
